FAERS Safety Report 6644486-0 (Version None)
Quarter: 2010Q1

REPORT INFORMATION
  Report Type: 
  Country: None (occurrence: None)
  Receive Date: 20100319
  Receipt Date: 20100319
  Transmission Date: 20100710
  Serious: Yes (Hospitalization, Disabling, Other)
  Sender: FDA-Public Use
  Company Number: None

PATIENT
  Age: 38 Year
  Sex: Female
  Weight: 95.2554 kg

DRUGS (2)
  1. FLEXERIL [Suspect]
     Indication: BACK PAIN
     Dosage: (10MG) 1 TABLET 3X A DAY
     Dates: start: 20090501
  2. SKELAXIN [Suspect]
     Indication: BACK PAIN
     Dosage: (10MG) 3X A DAY 1 TABLET
     Dates: start: 20091205, end: 20091210

REACTIONS (4)
  - DIZZINESS [None]
  - GENITAL HYPOAESTHESIA [None]
  - HYPOAESTHESIA [None]
  - SOMNOLENCE [None]
